FAERS Safety Report 8189679-9 (Version None)
Quarter: 2012Q1

REPORT INFORMATION
  Report Type: 
  Country: None (occurrence: None)
  Receive Date: 20120307
  Receipt Date: 20120228
  Transmission Date: 20120608
  Serious: Yes (Other)
  Sender: FDA-Public Use
  Company Number: US-COVIDIEN/TYCO HEALTHCARE/MALLINCKRODT-T201200727

PATIENT

DRUGS (1)
  1. MORPHINE [Suspect]
     Indication: PRODUCT USED FOR UNKNOWN INDICATION

REACTIONS (11)
  - TONGUE OEDEMA [None]
  - LOCAL SWELLING [None]
  - VOMITING [None]
  - SWELLING FACE [None]
  - GINGIVAL SWELLING [None]
  - GENERALISED OEDEMA [None]
  - SKIN DISORDER [None]
  - ASPIRATION [None]
  - GENERAL PHYSICAL HEALTH DETERIORATION [None]
  - DIARRHOEA [None]
  - ABDOMINAL PAIN UPPER [None]
